FAERS Safety Report 16939643 (Version 1)
Quarter: 2019Q4

REPORT INFORMATION
  Report Type: Spontaneous
  Country: US (occurrence: US)
  Receive Date: 20190827
  Receipt Date: 20190827
  Transmission Date: 20200122
  Serious: Yes (Hospitalization)
  Sender: FDA-Public Use
  Company Number: None

PATIENT
  Age: 72 Year
  Weight: 67.5 kg

DRUGS (2)
  1. PEMBROLIZUMAB. [Suspect]
     Active Substance: PEMBROLIZUMAB
  2. AZACITIDINE. [Suspect]
     Active Substance: AZACITIDINE

REACTIONS (9)
  - Blood culture positive [None]
  - Febrile neutropenia [None]
  - Staphylococcal infection [None]
  - Pneumocystis jirovecii pneumonia [None]
  - Cellulitis [None]
  - Drug eruption [None]
  - Hypotension [None]
  - Respiratory failure [None]
  - Catheter site oedema [None]

NARRATIVE: CASE EVENT DATE: 20190826
